FAERS Safety Report 5820958-3 (Version None)
Quarter: 2008Q3

REPORT INFORMATION
  Report Type: 
  Country: None (occurrence: None)
  Receive Date: 20080724
  Receipt Date: 20080709
  Transmission Date: 20090109
  Serious: Yes (Hospitalization, Other)
  Sender: FDA-Public Use
  Company Number: PHEH2006US03543

PATIENT
  Sex: Female
  Weight: 68.027 kg

DRUGS (24)
  1. AREDIA [Suspect]
     Dosage: 90 MG OVER 4 HOURS
     Route: 042
  2. AREDIA [Suspect]
     Dosage: 60 MG, UNK
     Route: 042
     Dates: start: 20060210
  3. AREDIA [Suspect]
     Dosage: EVERY 2 MONTHS
     Dates: start: 20061215
  4. ZOMETA [Suspect]
  5. PREDNISONE TAB [Concomitant]
     Indication: MULTIPLE MYELOMA
     Dosage: 5 MG, UNK
     Route: 048
  6. ATIVAN [Concomitant]
     Indication: ANXIETY
  7. EFFEXOR [Concomitant]
  8. PREMPHASE 14/14 [Concomitant]
  9. NEURONTIN [Concomitant]
  10. ZOFRAN [Concomitant]
  11. PREMARIN [Concomitant]
  12. ZOLOFT [Concomitant]
  13. ANZEMET [Concomitant]
  14. DURAGESIC-100 [Concomitant]
     Indication: PAIN IN JAW
     Dosage: UNK, Q48H
  15. ARANESP [Concomitant]
  16. VALIUM [Concomitant]
  17. LIMBITROL [Concomitant]
  18. REGLAN [Concomitant]
  19. ZANTAC [Concomitant]
  20. MOBIC [Concomitant]
  21. LASIX [Concomitant]
  22. KLOR-CON [Concomitant]
  23. IMMUNE GLOBULIN INTRAVENOUS (HUMAN) [Concomitant]
     Route: 042
  24. COZAAR [Concomitant]

REACTIONS (48)
  - ANAEMIA OF CHRONIC DISEASE [None]
  - ANAPHYLACTIC REACTION [None]
  - ANGIOEDEMA [None]
  - ANXIETY [None]
  - BIOPSY [None]
  - BIOPSY LUNG [None]
  - BONE DEBRIDEMENT [None]
  - BONE DISORDER [None]
  - BONE NEOPLASM MALIGNANT [None]
  - BRONCHIECTASIS [None]
  - DECREASED APPETITE [None]
  - DEEP VEIN THROMBOSIS [None]
  - DENTAL CARIES [None]
  - DENTAL DISCOMFORT [None]
  - DENTAL OPERATION [None]
  - DENTURE WEARER [None]
  - DIARRHOEA [None]
  - DYSPNOEA EXERTIONAL [None]
  - GASTROOESOPHAGEAL REFLUX DISEASE [None]
  - GINGIVAL INFECTION [None]
  - HEADACHE [None]
  - HISTOPLASMOSIS [None]
  - HYPERBARIC OXYGEN THERAPY [None]
  - HYPERTENSION [None]
  - HYPOTENSION [None]
  - INFECTION [None]
  - INTERSTITIAL LUNG DISEASE [None]
  - JAW DISORDER [None]
  - MOUTH ULCERATION [None]
  - MULTIPLE MYELOMA [None]
  - NAUSEA [None]
  - OPEN WOUND [None]
  - OSTEOMYELITIS [None]
  - OSTEONECROSIS [None]
  - PAIN IN JAW [None]
  - PERIODONTAL DISEASE [None]
  - PHLEBITIS [None]
  - PLEURAL FIBROSIS [None]
  - PNEUMONIA [None]
  - PYREXIA [None]
  - RENAL FAILURE ACUTE [None]
  - SPINAL OSTEOARTHRITIS [None]
  - TOOTH EXTRACTION [None]
  - TYPE 2 DIABETES MELLITUS [None]
  - ULCER [None]
  - URINARY INCONTINENCE [None]
  - VOMITING [None]
  - WEIGHT DECREASED [None]
